FAERS Safety Report 5046169-X (Version None)
Quarter: 2006Q2

REPORT INFORMATION
  Report Type: 
  Country: None (occurrence: None)
  Receive Date: 20060629
  Receipt Date: 20060621
  Transmission Date: 20061013
  Serious: Yes (Death)
  Sender: FDA-Public Use
  Company Number: M001193

PATIENT
  Age: 68 Year
  Sex: Male
  Weight: 100 kg

DRUGS (1)
  1. ACETADOTE [Suspect]
     Indication: DRUG TOXICITY
     Dosage: 300 MG/KG, IV
     Route: 042
     Dates: start: 20060614, end: 20060616

REACTIONS (2)
  - HEPATOTOXICITY [None]
  - INCORRECT DRUG ADMINISTRATION DURATION [None]
